FAERS Safety Report 6672353-5 (Version None)
Quarter: 2010Q2

REPORT INFORMATION
  Report Type: 
  Country: None (occurrence: None)
  Receive Date: 20100408
  Receipt Date: 20100330
  Transmission Date: 20101027
  Serious: Yes (Other)
  Sender: FDA-Public Use
  Company Number: US-RB-005680-10

PATIENT
  Age: 65 Year
  Sex: Female

DRUGS (5)
  1. MUCINEX D [Suspect]
  2. MUCINEX DM [Suspect]
     Indication: MULTIPLE ALLERGIES
     Dosage: TOOK 1 TABLET A DAY
     Route: 048
     Dates: start: 20100328
  3. MUCINEX DM [Suspect]
     Indication: RESPIRATORY TRACT CONGESTION
     Route: 048
     Dates: start: 20090101
  4. FLONASE [Concomitant]
  5. CLARITIN [Concomitant]

REACTIONS (4)
  - AGEUSIA [None]
  - BLOOD PRESSURE INCREASED [None]
  - HAEMOPTYSIS [None]
  - WEIGHT DECREASED [None]
